FAERS Safety Report 12612513 (Version 3)
Quarter: 2017Q1

REPORT INFORMATION
  Report Type: Spontaneous
  Country: DE (occurrence: DE)
  Receive Date: 20160801
  Receipt Date: 20170112
  Transmission Date: 20170428
  Serious: Yes (Hospitalization)
  Sender: FDA-Public Use
  Company Number: DE-TEIKOKU PHARMA USA-TPU2016-00362

PATIENT
  Age: 65 Year
  Sex: Female

DRUGS (3)
  1. VERSATIS [Suspect]
     Active Substance: LIDOCAINE
     Indication: NEURALGIA
     Route: 061
     Dates: start: 20160212, end: 20160330
  2. PANTOPRAZOLE [Concomitant]
     Active Substance: PANTOPRAZOLE SODIUM
  3. DEKRISTOL [Concomitant]
     Active Substance: CHOLECALCIFEROL

REACTIONS (5)
  - Palpitations [Recovered/Resolved]
  - Diarrhoea [Recovered/Resolved]
  - Gastrointestinal disorder [Recovered/Resolved]
  - Bradycardia [Recovered/Resolved]
  - Product use issue [None]

NARRATIVE: CASE EVENT DATE: 20160212
